FAERS Safety Report 25421338 (Version 1)
Quarter: 2025Q2

REPORT INFORMATION
  Report Type: Spontaneous
  Country: US (occurrence: US)
  Receive Date: 20250611
  Receipt Date: 20250611
  Transmission Date: 20250717
  Serious: Yes (Hospitalization, Other)
  Sender: PROCTER AND GAMBLE
  Company Number: US-MLMSERVICE-20250520-PI510080-00029-1

PATIENT
  Age: 15 Year

DRUGS (14)
  1. ACETAMINOPHEN [Suspect]
     Active Substance: ACETAMINOPHEN
     Route: 048
  2. SODIUM HYPOCHLORITE [Suspect]
     Active Substance: SODIUM HYPOCHLORITE
  3. METFORMIN [Concomitant]
     Active Substance: METFORMIN HYDROCHLORIDE
     Indication: Bipolar disorder
     Dosage: 500 MILLIGRAM, 1 /DAY
  4. METFORMIN [Concomitant]
     Active Substance: METFORMIN HYDROCHLORIDE
     Indication: Post-traumatic stress disorder
  5. SERTRALINE [Concomitant]
     Active Substance: SERTRALINE HYDROCHLORIDE
     Indication: Post-traumatic stress disorder
     Dosage: 50 MILLIGRAM, 1 /DAY
  6. SERTRALINE [Concomitant]
     Active Substance: SERTRALINE HYDROCHLORIDE
     Indication: Bipolar disorder
  7. CLONIDINE [Concomitant]
     Active Substance: CLONIDINE
     Indication: Post-traumatic stress disorder
     Dosage: 0.2 MILLIGRAM, BEDTIME (NIGHTLY)
  8. CLONIDINE [Concomitant]
     Active Substance: CLONIDINE
     Indication: Bipolar disorder
  9. MELATONIN [Concomitant]
     Active Substance: MELATONIN
     Indication: Post-traumatic stress disorder
     Dosage: 10 MILLIGRAM, BEDTIME (NIGHTLY)
  10. MELATONIN [Concomitant]
     Active Substance: MELATONIN
     Indication: Bipolar disorder
  11. OLANZAPINE [Concomitant]
     Active Substance: OLANZAPINE
     Indication: Post-traumatic stress disorder
     Dosage: 20 MILLIGRAM, BEDTIME (NIGHTLY)
  12. OLANZAPINE [Concomitant]
     Active Substance: OLANZAPINE
     Indication: Bipolar disorder
  13. TRAZODONE [Concomitant]
     Active Substance: TRAZODONE HYDROCHLORIDE
     Indication: Post-traumatic stress disorder
     Dosage: 100 MILLIGRAM, BEDTIME (NIGHTLY)
  14. TRAZODONE [Concomitant]
     Active Substance: TRAZODONE HYDROCHLORIDE
     Indication: Bipolar disorder

REACTIONS (3)
  - Suicide attempt [Unknown]
  - Intentional overdose [Unknown]
  - Intentional product use issue [Unknown]
